FAERS Safety Report 6804648-6 (Version None)
Quarter: 2010Q2

REPORT INFORMATION
  Report Type: 
  Country: None (occurrence: None)
  Receive Date: 20100628
  Receipt Date: 20070711
  Transmission Date: 20101027
  Serious: No
  Sender: FDA-Public Use
  Company Number: US-PFIZER INC-2007024983

PATIENT
  Sex: Female
  Weight: 81.65 kg

DRUGS (2)
  1. XALATAN [Suspect]
     Indication: GLAUCOMA
     Dosage: 1 EVERY 1 HOURS
     Route: 031
     Dates: start: 19970814
  2. XALATAN [Suspect]
     Indication: OPEN ANGLE GLAUCOMA

REACTIONS (2)
  - BLOOD CHOLESTEROL INCREASED [None]
  - HAIR COLOUR CHANGES [None]
